FAERS Safety Report 5627541-3 (Version None)
Quarter: 2008Q1

REPORT INFORMATION
  Report Type: 
  Country: None (occurrence: None)
  Receive Date: 20080215
  Receipt Date: 20071119
  Transmission Date: 20080703
  Serious: No
  Sender: FDA-Public Use
  Company Number: A0696672A

PATIENT
  Age: 89 Year
  Weight: 66.8 kg

DRUGS (2)
  1. COREG CR [Suspect]
     Dosage: 20MG PER DAY
     Route: 048
     Dates: start: 20070601
  2. COREG [Suspect]
     Dosage: 12.5MG TWICE PER DAY
     Route: 048

REACTIONS (1)
  - HEADACHE [None]
